FAERS Safety Report 19699846 (Version 2)
Quarter: 2021Q3

REPORT INFORMATION
  Report Type: Spontaneous
  Country: US (occurrence: US)
  Receive Date: 20210813
  Receipt Date: 20210915
  Transmission Date: 20211014
  Serious: No
  Sender: FDA-Public Use
  Company Number: US-B.I. PHARMACEUTICALS,INC./RIDGEFIELD-2021-BI-121274

PATIENT
  Age: 81 Year
  Sex: Female

DRUGS (1)
  1. SPIRIVA RESPIMAT [Suspect]
     Active Substance: TIOTROPIUM BROMIDE
     Indication: OXYGEN SATURATION DECREASED
     Dosage: 2 PUFFS, ONCE DAILY
     Route: 055
     Dates: start: 20210811

REACTIONS (3)
  - Cough [Not Recovered/Not Resolved]
  - Drug delivery system malfunction [Unknown]
  - Dysphonia [Not Recovered/Not Resolved]

NARRATIVE: CASE EVENT DATE: 20210812
